FAERS Safety Report 8198899-9 (Version None)
Quarter: 2012Q1

REPORT INFORMATION
  Report Type: 
  Country: None (occurrence: None)
  Receive Date: 20120309
  Receipt Date: 20120222
  Transmission Date: 20120608
  Serious: No
  Sender: FDA-Public Use
  Company Number: US-AMGEN-USASP2012011787

PATIENT
  Sex: Female

DRUGS (3)
  1. PROLIA [Suspect]
     Indication: OSTEOPOROSIS POSTMENOPAUSAL
     Dosage: UNK
  2. MUSCLE RELAXANTS [Concomitant]
  3. PLAQUENIL [Concomitant]

REACTIONS (2)
  - WHEELCHAIR USER [None]
  - DENTAL CARIES [None]
